FAERS Safety Report 9353237 (Version 1)
Quarter: 2013Q2

REPORT INFORMATION
  Report Type: Spontaneous
  Country: US (occurrence: None)
  Receive Date: 20130617
  Receipt Date: 20130617
  Transmission Date: 20140414
  Serious: No
  Sender: FDA-Public Use
  Company Number: None

PATIENT
  Sex: Female
  Weight: 61.24 kg

DRUGS (1)
  1. METAPROLOL TARTRATE [Suspect]
     Dosage: 50 MG BID PO
     Route: 048

REACTIONS (7)
  - Cyanosis [None]
  - Insomnia [None]
  - Rhinorrhoea [None]
  - Pruritus [None]
  - Eye pruritus [None]
  - Local swelling [None]
  - Joint swelling [None]
